FAERS Safety Report 7966043-6 (Version None)
Quarter: 2011Q4

REPORT INFORMATION
  Report Type: 
  Country: None (occurrence: None)
  Receive Date: 20111208
  Receipt Date: 20111205
  Transmission Date: 20120403
  Serious: No
  Sender: FDA-Public Use
  Company Number: US-PFIZER INC-2011296891

PATIENT
  Age: 42 Year
  Sex: Female

DRUGS (1)
  1. IBUPROFEN (ADVIL) [Suspect]
     Indication: TOOTHACHE
     Dosage: UNK
     Route: 048

REACTIONS (1)
  - MALAISE [None]
